FAERS Safety Report 9148304 (Version 1)
Quarter: 2013Q1

REPORT INFORMATION
  Report Type: Spontaneous
  Country: US (occurrence: None)
  Receive Date: 20130228
  Receipt Date: 20130228
  Transmission Date: 20140127
  Serious: Yes (Hospitalization, Disabling)
  Sender: FDA-Public Use
  Company Number: None

PATIENT
  Age: 91 Year
  Sex: Female
  Weight: 60 kg

DRUGS (1)
  1. IMIQUIMOD [Suspect]
     Indication: BASAL CELL CARCINOMA
     Dosage: APPLY TO SKIN CANCER  3 TIMES PER WEEK  TOP
     Route: 061
     Dates: start: 20110801, end: 20110815

REACTIONS (10)
  - Drug administered at inappropriate site [None]
  - Skin reaction [None]
  - Insomnia [None]
  - Anxiety [None]
  - Cognitive disorder [None]
  - Delirium [None]
  - Dementia [None]
  - Depression [None]
  - Agitation [None]
  - Inappropriate schedule of drug administration [None]
